FAERS Safety Report 13009195 (Version 3)
Quarter: 2017Q2

REPORT INFORMATION
  Report Type: Spontaneous
  Country: US (occurrence: US)
  Receive Date: 20161208
  Receipt Date: 20170612
  Transmission Date: 20170830
  Serious: Yes (Hospitalization, Disabling)
  Sender: FDA-Public Use
  Company Number: US-NOVOPROD-521559

PATIENT
  Age: 58 Year
  Sex: Male

DRUGS (13)
  1. ACETAMINOPHEN. [Concomitant]
     Active Substance: ACETAMINOPHEN
     Indication: PRODUCT USED FOR UNKNOWN INDICATION
     Dosage: 1300 MG, EVERY 4 HOURS, AS NEEDED
     Route: 048
  2. COLACE [Concomitant]
     Active Substance: DOCUSATE SODIUM
     Indication: PRODUCT USED FOR UNKNOWN INDICATION
     Dosage: 100 MG, QD
     Route: 050
  3. MARINOL [Concomitant]
     Active Substance: DRONABINOL
     Dosage: 25 MG, TID
     Route: 058
     Dates: start: 201605
  4. BETHANECHOL [Concomitant]
     Active Substance: BETHANECHOL
     Indication: PRODUCT USED FOR UNKNOWN INDICATION
     Dosage: 10 MG, TID
     Route: 050
  5. HYDRALAZINE [Concomitant]
     Active Substance: HYDRALAZINE HYDROCHLORIDE
     Indication: PRODUCT USED FOR UNKNOWN INDICATION
     Dosage: 10 MG, EVERY 4 HOURS AS NEEDED
     Route: 042
  6. NPH                                /00030513/ [Concomitant]
     Indication: DIABETES MELLITUS
     Dosage: 22 U, EVERY 12 HOURS
     Route: 058
  7. LOVENOX [Concomitant]
     Active Substance: ENOXAPARIN SODIUM
     Indication: PRODUCT USED FOR UNKNOWN INDICATION
     Dosage: 30 MG EVERY 12 HOURS
     Route: 058
  8. MARINOL [Concomitant]
     Active Substance: DRONABINOL
     Indication: PRODUCT USED FOR UNKNOWN INDICATION
     Dosage: 25 MG, QID
     Route: 058
     Dates: end: 201605
  9. VICTOZA [Suspect]
     Active Substance: LIRAGLUTIDE
     Indication: DIABETES MELLITUS
     Dosage: UNKNOWN
     Route: 058
     Dates: start: 20140730, end: 2015
  10. INSULIN [Concomitant]
     Active Substance: INSULIN NOS
     Indication: DIABETES MELLITUS
     Dosage: SLIDING SCALE BEFORE MEALS AND AT BEDTIME
     Route: 058
  11. MIRALAX [Concomitant]
     Active Substance: POLYETHYLENE GLYCOL 3350
     Indication: PRODUCT USED FOR UNKNOWN INDICATION
     Dosage: 17 G, QD
     Route: 050
  12. GLUCAGON. [Concomitant]
     Active Substance: GLUCAGON
     Indication: PRODUCT USED FOR UNKNOWN INDICATION
     Dosage: 1 MG, PRN
     Route: 058
  13. LABETALOL [Concomitant]
     Active Substance: LABETALOL\LABETALOL HYDROCHLORIDE
     Indication: PRODUCT USED FOR UNKNOWN INDICATION
     Dosage: 10 MG EVERY 4 HOURS AS NEEDED
     Route: 042

REACTIONS (12)
  - Encephalopathy [Unknown]
  - Loss of consciousness [Unknown]
  - Subarachnoid haemorrhage [Unknown]
  - Malnutrition [Recovering/Resolving]
  - Cerebral haemorrhage [Unknown]
  - Laceration [Unknown]
  - Pancreatitis acute [Recovering/Resolving]
  - Sepsis [Unknown]
  - Fall [Unknown]
  - Acute respiratory failure [Unknown]
  - Pancreatitis necrotising [Recovering/Resolving]
  - Pancreatic cyst [Unknown]

NARRATIVE: CASE EVENT DATE: 2015
